FAERS Safety Report 7213117-3 (Version None)
Quarter: 2010Q4

REPORT INFORMATION
  Report Type: 
  Country: None (occurrence: None)
  Receive Date: 20101229
  Receipt Date: 20101220
  Transmission Date: 20110411
  Serious: Yes (Hospitalization, Other)
  Sender: FDA-Public Use
  Company Number: 20109472

PATIENT
  Age: 53 Year
  Sex: Male

DRUGS (1)
  1. GABALON INTHRATHECAL (BACLOFEN INJECTION) [Suspect]
     Indication: MUSCLE SPASTICITY
     Dosage: DAILY, INTRATHECAL
     Route: 037

REACTIONS (6)
  - BALANCE DISORDER [None]
  - CONTUSION [None]
  - DIZZINESS [None]
  - FALL [None]
  - FEMUR FRACTURE [None]
  - FRACTURE DELAYED UNION [None]
